FAERS Safety Report 25226023 (Version 2)
Quarter: 2025Q3

REPORT INFORMATION
  Report Type: Spontaneous
  Country: US (occurrence: US)
  Receive Date: 20250422
  Receipt Date: 20250929
  Transmission Date: 20251020
  Serious: No
  Sender: SANOFI AVENTIS
  Company Number: US-SA-2025SA115162

PATIENT
  Age: 71 Year
  Sex: Female

DRUGS (1)
  1. DUPIXENT [Suspect]
     Active Substance: DUPILUMAB
     Indication: Nasal polyps
     Dosage: 300 MG, QOW
     Route: 058

REACTIONS (4)
  - Hyposmia [Not Recovered/Not Resolved]
  - Paranasal sinus discomfort [Unknown]
  - Pruritus [Unknown]
  - Urticaria [Unknown]

NARRATIVE: CASE EVENT DATE: 20250601
